FAERS Safety Report 4773130-2 (Version None)
Quarter: 2005Q3

REPORT INFORMATION
  Report Type: 
  Country: None (occurrence: None)
  Receive Date: 20050915
  Receipt Date: 20050915
  Transmission Date: 20060218
  Serious: Yes (Death)
  Sender: FDA-Public Use
  Company Number: None

PATIENT
  Age: 82 Year
  Sex: Female
  Weight: 68.0396 kg

DRUGS (6)
  1. DURAGESIC-50 [Suspect]
     Indication: OSTEOPOROSIS
     Dosage: 50MCG   EVERY 72 HOURS   TRANSDERMA
     Route: 062
     Dates: start: 20030810, end: 20050219
  2. DURAGESIC-50 [Suspect]
     Indication: PERIPHERAL OCCLUSIVE DISEASE
     Dosage: 50MCG   EVERY 72 HOURS   TRANSDERMA
     Route: 062
     Dates: start: 20030810, end: 20050219
  3. AMBIEN [Concomitant]
  4. ZOLOFT [Concomitant]
  5. SEROQUEL [Concomitant]
  6. EVISTA [Concomitant]

REACTIONS (3)
  - ALCOHOL USE [None]
  - SOMNOLENCE [None]
  - VICTIM OF HOMICIDE [None]
